FAERS Safety Report 9323903 (Version 3)
Quarter: 2013Q2

REPORT INFORMATION
  Report Type: Spontaneous
  Country: IS (occurrence: IS)
  Receive Date: 20130603
  Receipt Date: 20130620
  Transmission Date: 20140414
  Serious: Yes (Other)
  Sender: FDA-Public Use
  Company Number: IS-JNJFOC-20130511984

PATIENT
  Age: 4 Decade
  Sex: Female

DRUGS (7)
  1. NICORETTE INHALER [Suspect]
     Indication: SMOKING CESSATION THERAPY
     Route: 048
     Dates: start: 2012
  2. NICORETTE QUICKMIST [Suspect]
     Indication: SMOKING CESSATION THERAPY
     Route: 048
     Dates: start: 2012, end: 2013
  3. NICORETTE MIRCOTAB [Suspect]
     Indication: SMOKING CESSATION THERAPY
     Route: 060
  4. NICORETTE GUM [Suspect]
     Indication: SMOKING CESSATION THERAPY
     Route: 048
  5. EFFEXOR [Concomitant]
     Indication: ALCOHOLIC
     Route: 065
  6. VITAMINS (NOS) [Concomitant]
     Route: 065
  7. COD-LIVER OIL [Concomitant]
     Route: 065

REACTIONS (6)
  - Alcoholism [Unknown]
  - Nicotine dependence [Unknown]
  - Overdose [Unknown]
  - Intentional drug misuse [Unknown]
  - Wrong technique in drug usage process [Not Recovered/Not Resolved]
  - Product quality issue [Unknown]
